FAERS Safety Report 6610931-X (Version None)
Quarter: 2010Q1

REPORT INFORMATION
  Report Type: 
  Country: None (occurrence: None)
  Receive Date: 20100222
  Receipt Date: 20100125
  Transmission Date: 20100710
  Serious: Yes (Other)
  Sender: FDA-Public Use
  Company Number: 2010-00002

PATIENT
  Age: 15 Year
  Sex: Female
  Weight: 47.6277 kg

DRUGS (1)
  1. CLEAN AND CLEAR [Suspect]
     Indication: ACNE
     Dosage: DAILY, TOPICAL
     Route: 061
     Dates: start: 20100118, end: 20100124

REACTIONS (3)
  - FOAMING AT MOUTH [None]
  - THERMAL BURN [None]
  - VISUAL IMPAIRMENT [None]
